FAERS Safety Report 9034251 (Version 1)
Quarter: 2013Q1

REPORT INFORMATION
  Report Type: Spontaneous
  Country: US (occurrence: None)
  Receive Date: 20130116
  Receipt Date: 20130116
  Transmission Date: 20140127
  Serious: Yes (Hospitalization)
  Sender: FDA-Public Use
  Company Number: None

PATIENT
  Age: 19 Year
  Sex: Female
  Weight: 56.7 kg

DRUGS (2)
  1. DEPAKOTE ER [Suspect]
     Indication: JUVENILE MYOCLONIC EPILEPSY
     Dosage: 2 TABLETS
     Route: 048
     Dates: start: 20120523, end: 20130115
  2. DEPAKOTE ER [Suspect]
     Indication: MYOCLONUS
     Dosage: 2 TABLETS
     Route: 048
     Dates: start: 20120523, end: 20130115

REACTIONS (5)
  - Rash [None]
  - Urticaria [None]
  - Swelling [None]
  - Stevens-Johnson syndrome [None]
  - Stomatitis [None]
